FAERS Safety Report 8897915 (Version 1)
Quarter: 2012Q4

REPORT INFORMATION
  Report Type: 
  Country: US (occurrence: US)
  Receive Date: 20121108
  Receipt Date: 20121108
  Transmission Date: 20130627
  Serious: No
  Sender: FDA-Public Use
  Company Number: US-AMGEN-USASP2012033370

PATIENT
  Age: 52 Year
  Sex: Female

DRUGS (6)
  1. ENBREL [Suspect]
     Indication: PSORIASIS
     Dosage: 50 mg, qwk
     Dates: start: 201202
  2. FLONASE [Concomitant]
     Dosage: UNK
  3. PAROXETINE [Concomitant]
     Dosage: UNK
  4. ZYRTEC [Concomitant]
     Dosage: UNK
  5. LEVOTHYROXINE [Concomitant]
     Dosage: UNK
  6. LIOTHYRONINE [Concomitant]
     Dosage: UNK

REACTIONS (3)
  - Injection site urticaria [Unknown]
  - Injection site bruising [Unknown]
  - Injection site pruritus [Unknown]
